FAERS Safety Report 24078535 (Version 1)
Quarter: 2024Q3

REPORT INFORMATION
  Report Type: Spontaneous
  Country: CN (occurrence: CN)
  Receive Date: 20240711
  Receipt Date: 20240711
  Transmission Date: 20241016
  Serious: Yes (Death, Life-Threatening, Hospitalization)
  Sender: STRIDES
  Company Number: CN-STRIDES ARCOLAB LIMITED-2024SP008164

PATIENT
  Age: 10 Year
  Sex: Male

DRUGS (32)
  1. PREDNISOLONE [Suspect]
     Active Substance: PREDNISOLONE
     Indication: Hypertension
     Dosage: 1 MILLIGRAM/KILOGRAM, QD
     Route: 048
  2. PREDNISOLONE [Suspect]
     Active Substance: PREDNISOLONE
     Indication: Pulmonary hypertension
  3. PREDNISOLONE [Suspect]
     Active Substance: PREDNISOLONE
     Indication: Cardiac failure acute
  4. CAPTOPRIL [Suspect]
     Active Substance: CAPTOPRIL
     Indication: Hypertension
     Dosage: UNK
     Route: 065
  5. CAPTOPRIL [Suspect]
     Active Substance: CAPTOPRIL
     Indication: Pulmonary hypertension
  6. CAPTOPRIL [Suspect]
     Active Substance: CAPTOPRIL
     Indication: Cardiac failure acute
  7. BOSENTAN [Suspect]
     Active Substance: BOSENTAN
     Indication: Pulmonary hypertension
     Dosage: UNK
     Route: 065
  8. BOSENTAN [Suspect]
     Active Substance: BOSENTAN
     Indication: Cardiac failure acute
  9. BOSENTAN [Suspect]
     Active Substance: BOSENTAN
     Indication: Hypertension
  10. MILRINONE [Suspect]
     Active Substance: MILRINONE
     Indication: Pulmonary hypertension
     Dosage: UNK
     Route: 065
  11. MILRINONE [Suspect]
     Active Substance: MILRINONE
     Indication: Cardiac failure acute
  12. MILRINONE [Suspect]
     Active Substance: MILRINONE
     Indication: Hypertension
  13. HEPARIN [Suspect]
     Active Substance: HEPARIN SODIUM
     Indication: Pulmonary hypertension
     Dosage: UNK
     Route: 058
  14. HEPARIN [Suspect]
     Active Substance: HEPARIN SODIUM
     Indication: Cardiac failure acute
     Dosage: UNK, LOW-MOLECULAR WEIGHT
     Route: 065
  15. HEPARIN [Suspect]
     Active Substance: HEPARIN SODIUM
     Indication: Hypertension
  16. INFLIXIMAB [Suspect]
     Active Substance: INFLIXIMAB
     Indication: Pulmonary hypertension
     Dosage: UNK, TWO DOSES
     Route: 042
  17. INFLIXIMAB [Suspect]
     Active Substance: INFLIXIMAB
     Indication: Cardiac failure acute
  18. INFLIXIMAB [Suspect]
     Active Substance: INFLIXIMAB
     Indication: Hypertension
  19. METHYLPREDNISOLONE [Suspect]
     Active Substance: METHYLPREDNISOLONE
     Indication: Pulmonary hypertension
     Dosage: 10 MILLIGRAM/KILOGRAM, QD
     Route: 042
  20. METHYLPREDNISOLONE [Suspect]
     Active Substance: METHYLPREDNISOLONE
     Indication: Cardiac failure acute
     Dosage: UNK
     Route: 065
  21. METHYLPREDNISOLONE [Suspect]
     Active Substance: METHYLPREDNISOLONE
     Indication: Hypertension
  22. METOPROLOL [Suspect]
     Active Substance: METOPROLOL
     Indication: Pulmonary hypertension
     Dosage: UNK
     Route: 065
  23. METOPROLOL [Suspect]
     Active Substance: METOPROLOL
     Indication: Cardiac failure acute
  24. METOPROLOL [Suspect]
     Active Substance: METOPROLOL
     Indication: Hypertension
  25. TOCILIZUMAB [Suspect]
     Active Substance: TOCILIZUMAB
     Indication: Pulmonary hypertension
     Dosage: 8 MILLIGRAM/KILOGRAM
     Route: 042
  26. TOCILIZUMAB [Suspect]
     Active Substance: TOCILIZUMAB
     Indication: Cardiac failure acute
  27. TOCILIZUMAB [Suspect]
     Active Substance: TOCILIZUMAB
     Indication: Hypertension
  28. UROKINASE [Suspect]
     Active Substance: UROKINASE
     Indication: Pulmonary hypertension
     Dosage: UNK
     Route: 065
  29. UROKINASE [Suspect]
     Active Substance: UROKINASE
     Indication: Cardiac failure acute
  30. UROKINASE [Suspect]
     Active Substance: UROKINASE
     Indication: Hypertension
  31. DIAZEPAM [Suspect]
     Active Substance: DIAZEPAM
     Indication: Seizure
     Dosage: UNK
     Route: 065
  32. BCG VACCINE [Suspect]
     Active Substance: BCG VACCINE
     Indication: Immunisation
     Dosage: UNK
     Route: 065

REACTIONS (5)
  - Death [Fatal]
  - Therapy non-responder [Unknown]
  - Pulmonary hypertension [Unknown]
  - Cardiac failure [Not Recovered/Not Resolved]
  - Hypertension [Unknown]
